FAERS Safety Report 17010373 (Version 1)
Quarter: 2019Q4

REPORT INFORMATION
  Report Type: Spontaneous
  Country: US (occurrence: US)
  Receive Date: 20191108
  Receipt Date: 20191108
  Transmission Date: 20200122
  Serious: Yes (Hospitalization, Other)
  Sender: FDA-Public Use
  Company Number: US-JNJFOC-20191101058

PATIENT
  Age: 55 Year
  Sex: Male

DRUGS (2)
  1. IBUPROFEN. [Suspect]
     Active Substance: IBUPROFEN
     Indication: HEADACHE
     Dosage: 3 HOURS PRIOR TO PRESENTATION; IN TOTAL
     Route: 048
  2. IBUPROFEN. [Suspect]
     Active Substance: IBUPROFEN
     Indication: PAIN IN JAW
     Dosage: 7 HOURS PRIOR TO PRESENTATION; IN TOTAL
     Route: 048

REACTIONS (1)
  - Encephalitis [Recovered/Resolved]
